FAERS Safety Report 8002999-3 (Version None)
Quarter: 2011Q4

REPORT INFORMATION
  Report Type: 
  Country: None (occurrence: None)
  Receive Date: 20111222
  Receipt Date: 20110801
  Transmission Date: 20120403
  Serious: No
  Sender: FDA-Public Use
  Company Number: US-GLAXOSMITHKLINE-A0939286A

PATIENT
  Sex: Male

DRUGS (2)
  1. AVODART [Suspect]
     Indication: PRODUCT USED FOR UNKNOWN INDICATION
     Dosage: .5MG ALTERNATE DAYS
     Route: 048
  2. NO CONCURRENT MEDICATION [Concomitant]

REACTIONS (6)
  - LIBIDO DECREASED [None]
  - DIZZINESS [None]
  - ERECTILE DYSFUNCTION [None]
  - RASH [None]
  - WEIGHT DECREASED [None]
  - PSEUDOMONAS INFECTION [None]
